FAERS Safety Report 22598659 (Version 1)
Quarter: 2023Q2

REPORT INFORMATION
  Report Type: Other
  Country: US (occurrence: None)
  Receive Date: 20230614
  Receipt Date: 20230614
  Transmission Date: 20230722
  Serious: Yes (Hospitalization, Other)
  Sender: FDA-Public Use
  Company Number: US-ROCHE-3364758

PATIENT
  Age: 79 Year
  Sex: Male
  Weight: 94.432 kg

DRUGS (14)
  1. AVASTIN [Suspect]
     Active Substance: BEVACIZUMAB
     Indication: Retinal vein occlusion
     Dosage: INJECTION IN RIGHT EYE
     Route: 050
     Dates: start: 20230301, end: 20230531
  2. AVASTIN [Suspect]
     Active Substance: BEVACIZUMAB
     Indication: Macular oedema
     Route: 050
     Dates: start: 20230303
  3. OXYBUTYNIN [Concomitant]
     Active Substance: OXYBUTYNIN
     Indication: Pollakiuria
     Route: 048
  4. NATTOKINASE [Concomitant]
     Active Substance: NATTOKINASE
  5. PROTANDIM NRF2 SYNERGIZER [Concomitant]
  6. PROTANDIM NRF1 SYNERGIZER [Concomitant]
  7. DIETARY SUPPLEMENT [Concomitant]
     Active Substance: DIETARY SUPPLEMENT
     Dosage: PROTANDIM NAD
  8. VITAMIN D3 [Concomitant]
     Active Substance: CHOLECALCIFEROL
  9. MAGNESIUM [Concomitant]
     Active Substance: MAGNESIUM
  10. ZINC [Concomitant]
     Active Substance: ZINC
  11. POTASSIUM [Concomitant]
     Active Substance: POTASSIUM
  12. VITAMIN B12 [Concomitant]
     Active Substance: CYANOCOBALAMIN
  13. FOLIC ACID [Concomitant]
     Active Substance: FOLIC ACID
  14. COLLAGEN [Concomitant]
     Active Substance: COLLAGEN

REACTIONS (8)
  - Transient ischaemic attack [Unknown]
  - Myocardial infarction [Unknown]
  - Supraventricular extrasystoles [Unknown]
  - Electrocardiogram T wave abnormal [Unknown]
  - Off label use [Unknown]
  - Embolism [Unknown]
  - Hypertension [Recovered/Resolved]
  - Cerebrovascular accident [Not Recovered/Not Resolved]

NARRATIVE: CASE EVENT DATE: 20230301
